FAERS Safety Report 5876095-5 (Version None)
Quarter: 2008Q3

REPORT INFORMATION
  Report Type: 
  Country: None (occurrence: None)
  Receive Date: 20080905
  Receipt Date: 20080825
  Transmission Date: 20090109
  Serious: Yes (Hospitalization)
  Sender: FDA-Public Use
  Company Number: 2008SP017481

PATIENT
  Age: 67 Year
  Sex: Female

DRUGS (1)
  1. DIPROPHOS (BETAMETHASONE SODIUM PHOSPHATE/DIPROPIONATE) (BETAMETHASONE [Suspect]
     Indication: TENDONITIS
     Dates: start: 20080803

REACTIONS (1)
  - ANAPHYLACTIC SHOCK [None]
